FAERS Safety Report 9459467 (Version 2)
Quarter: 2013Q3

REPORT INFORMATION
  Report Type: Spontaneous
  Country: US (occurrence: US)
  Receive Date: 20130815
  Receipt Date: 20130917
  Transmission Date: 20140515
  Serious: No
  Sender: FDA-Public Use
  Company Number: US-009507513-1308USA005924

PATIENT
  Age: 48 Year
  Sex: Male
  Weight: 73.16 kg

DRUGS (8)
  1. VICTRELIS [Suspect]
     Indication: HEPATITIS C
     Dosage: 800 MG, TID
     Route: 048
     Dates: start: 20130327
  2. RIBAPAK [Suspect]
     Indication: HEPATITIS C
     Dosage: 600 MG, QD
     Route: 048
     Dates: start: 20130226, end: 2013
  3. RIBAPAK [Suspect]
     Dosage: 400 MG, QD
     Route: 048
     Dates: start: 2013
  4. PEGASYS [Suspect]
     Indication: HEPATITIS C
     Dosage: 180 MG, UNK
     Dates: start: 20130225, end: 2013
  5. PEGASYS [Suspect]
     Dosage: 135 MG, UNK
     Dates: start: 2013
  6. METFORMIN [Concomitant]
     Dosage: 500 MG, BID
  7. CRESTOR [Concomitant]
     Dosage: 10 MG, QD
  8. ANUCORT [Concomitant]
     Indication: HAEMORRHOIDS
     Dosage: UNK, PRN
     Route: 054

REACTIONS (4)
  - Cough [Not Recovered/Not Resolved]
  - Dysgeusia [Not Recovered/Not Resolved]
  - Fatigue [Unknown]
  - Heart rate increased [Unknown]
